FAERS Safety Report 6723900-6 (Version None)
Quarter: 2010Q2

REPORT INFORMATION
  Report Type: 
  Country: None (occurrence: None)
  Receive Date: 20100513
  Receipt Date: 20100505
  Transmission Date: 20101027
  Serious: Yes (Hospitalization)
  Sender: FDA-Public Use
  Company Number: DE-WATSON-2010-05533

PATIENT

DRUGS (16)
  1. SIMVASTATIN (WATSON LABORATORIES) [Suspect]
     Indication: HYPERLIPIDAEMIA
     Dosage: 40 MG, UNK
     Route: 048
     Dates: start: 20081101, end: 20090505
  2. AMLODIPINE BESYLATE [Suspect]
     Indication: HYPERTENSION
     Dosage: 5 MG, UNK
     Route: 048
     Dates: start: 20081101, end: 20090515
  3. RAMIPRIL [Suspect]
     Indication: HYPERTENSION
     Dosage: 2 1/2 MG, UNK
     Route: 048
     Dates: start: 20000101, end: 20090512
  4. RAMIPRIL [Suspect]
     Dosage: 1 1/4 MG, UNK
     Dates: start: 20100513
  5. FALITHROM [Suspect]
     Indication: TACHYARRHYTHMIA
     Dosage: 3 MG, UNK
     Route: 048
     Dates: start: 20081101, end: 20090504
  6. METHOTREXATE [Suspect]
     Indication: RHEUMATOID ARTHRITIS
     Dosage: 10 MG, UNK
     Route: 058
     Dates: start: 20081101, end: 20090504
  7. SEROQUEL [Suspect]
     Indication: RESTLESSNESS
     Dosage: 25 MG, UNK
     Route: 048
     Dates: start: 20081101
  8. CORDANUM [Suspect]
     Indication: TACHYARRHYTHMIA
     Dosage: 50 MG, UNK
     Route: 048
     Dates: start: 20081101, end: 20090504
  9. TORASEMIDE [Suspect]
     Indication: HYPERTENSION
     Dosage: 200 MG, UNK
     Route: 048
     Dates: start: 20081101
  10. OMEPRAZOLE [Suspect]
     Indication: PROPHYLAXIS AGAINST GASTROINTESTINAL ULCER
     Dosage: 20 MG, UNK
     Route: 048
     Dates: start: 20081101, end: 20090503
  11. PREDNISOLONE [Concomitant]
     Indication: RHEUMATOID ARTHRITIS
     Dosage: 5 MG, UNK
     Route: 048
     Dates: start: 20020101
  12. ACTONEL WITH CALCIUM (COPACKAGED) [Concomitant]
     Indication: OSTEOPOROSIS
     Dosage: 1 DF, UNK
     Route: 048
     Dates: start: 20040101, end: 20090505
  13. XIPAMIDE [Concomitant]
     Indication: HYPERTENSION
     Dosage: 10 MG, UNK
     Route: 048
     Dates: start: 20081101, end: 20090503
  14. DIGITOXIN [Concomitant]
     Indication: TACHYARRHYTHMIA
     Dosage: 0.07 MG, UNK
     Route: 048
     Dates: start: 20081101
  15. FOLIC ACID [Concomitant]
     Indication: IMMUNOSUPPRESSANT DRUG THERAPY
     Dosage: UNK
     Route: 048
     Dates: start: 20081101, end: 20090504
  16. DREISAFER                          /00989901/ [Concomitant]
     Indication: IRON DEFICIENCY
     Dosage: 100 MG, UNK
     Route: 048
     Dates: start: 20081101, end: 20090504

REACTIONS (2)
  - ALVEOLITIS [None]
  - TRANSAMINASES INCREASED [None]
